FAERS Safety Report 20982880 (Version 1)
Quarter: 2022Q2

REPORT INFORMATION
  Report Type: Spontaneous
  Country: US (occurrence: US)
  Receive Date: 20220620
  Receipt Date: 20220620
  Transmission Date: 20220720
  Serious: No
  Sender: FDA-Public Use
  Company Number: US-ORGANON-O2206USA000907

PATIENT
  Sex: Female

DRUGS (11)
  1. REMERON [Suspect]
     Active Substance: MIRTAZAPINE
     Indication: Mood altered
     Dosage: 30 MILLIGRAM, HS (BED TIME)
     Route: 048
  2. REMERON [Suspect]
     Active Substance: MIRTAZAPINE
     Indication: Increased appetite
  3. FLUVOXAMINE [Concomitant]
     Active Substance: FLUVOXAMINE
     Indication: Obsessive-compulsive personality disorder
     Dosage: 50 MILLIGRAM, HS (BED TIME)
  4. OLANZAPINE [Concomitant]
     Active Substance: OLANZAPINE
     Indication: Mood altered
     Dosage: 5 MILLIGRAM, HS (BED TIME)
  5. OLANZAPINE [Concomitant]
     Active Substance: OLANZAPINE
     Indication: Increased appetite
  6. LORAZEPAM [Concomitant]
     Active Substance: LORAZEPAM
     Indication: Catatonia
     Dosage: 2 MILLIGRAM, TID
  7. LORAZEPAM [Concomitant]
     Active Substance: LORAZEPAM
     Indication: Negativism
  8. LORAZEPAM [Concomitant]
     Active Substance: LORAZEPAM
     Indication: Mutism
  9. LORAZEPAM [Concomitant]
     Active Substance: LORAZEPAM
     Indication: Stupor
  10. LEVOTHYROXINE [Concomitant]
     Active Substance: LEVOTHYROXINE
     Indication: Hypothyroidism
     Dosage: 55 MICROGRAM, QAM (IN THE MORNING)
  11. LEVOTHYROXINE [Concomitant]
     Active Substance: LEVOTHYROXINE
     Dosage: 55 MICROGRAM, QAM (IN THE MORNING)

REACTIONS (1)
  - Product use in unapproved indication [Unknown]
